FAERS Safety Report 6140812-X (Version None)
Quarter: 2009Q1

REPORT INFORMATION
  Report Type: 
  Country: None (occurrence: None)
  Receive Date: 20090331
  Receipt Date: 20090326
  Transmission Date: 20090719
  Serious: Yes (Hospitalization)
  Sender: FDA-Public Use
  Company Number: 189503ISR

PATIENT
  Age: 87 Year
  Sex: Female

DRUGS (1)
  1. WARFARIN SODIUM [Suspect]
     Indication: ATRIAL FIBRILLATION
     Dosage: (5 MG) ORAL
     Route: 048
     Dates: end: 20090304

REACTIONS (1)
  - ABDOMINAL WALL HAEMATOMA [None]
